FAERS Safety Report 7259280-X (Version None)
Quarter: 2011Q1

REPORT INFORMATION
  Report Type: 
  Country: None (occurrence: None)
  Receive Date: 20110129
  Receipt Date: 20100728
  Transmission Date: 20110831
  Serious: No
  Sender: FDA-Public Use
  Company Number: US-ABBOTT-10P-163-0661106-00

PATIENT
  Sex: Female

DRUGS (6)
  1. NIASPAN [Concomitant]
     Indication: BLOOD CHOLESTEROL INCREASED
     Dates: start: 20100501
  2. VICODIN ES [Concomitant]
     Indication: ARTHRALGIA
     Route: 048
  3. BLACK COHOSH [Concomitant]
     Indication: HOT FLUSH
     Route: 048
     Dates: start: 20100711
  4. RESERVATROL [Concomitant]
     Indication: ANTIOXIDANT THERAPY
     Route: 048
     Dates: start: 20100601
  5. HUMIRA [Suspect]
     Indication: RHEUMATOID ARTHRITIS
     Route: 058
     Dates: start: 20100722
  6. AMBIEN [Concomitant]
     Indication: PRODUCT USED FOR UNKNOWN INDICATION
     Route: 048

REACTIONS (1)
  - MENORRHAGIA [None]
